FAERS Safety Report 16810804 (Version 1)
Quarter: 2019Q4

REPORT INFORMATION
  Report Type: Spontaneous
  Country: US (occurrence: US)
  Receive Date: 20190916
  Receipt Date: 20190916
  Transmission Date: 20200122
  Serious: Yes (Hospitalization)
  Sender: FDA-Public Use
  Company Number: None

PATIENT
  Age: 11 Month
  Sex: Female

DRUGS (7)
  1. NYSTATIN. [Concomitant]
     Active Substance: NYSTATIN
  2. ARTIFICIAL TEAR DROPS [Concomitant]
  3. SODIUM CHLORIDE. [Suspect]
     Active Substance: SODIUM CHLORIDE
     Indication: HYPOXIC-ISCHAEMIC ENCEPHALOPATHY
     Route: 045
  4. SODIUM CHLORIDE. [Concomitant]
     Active Substance: SODIUM CHLORIDE
  5. KEPPRA [Concomitant]
     Active Substance: LEVETIRACETAM
  6. MULTIVITAMIN [Concomitant]
     Active Substance: VITAMINS
  7. CIPROFLOXACIN. [Concomitant]
     Active Substance: CIPROFLOXACIN

REACTIONS (1)
  - Hospitalisation [None]

NARRATIVE: CASE EVENT DATE: 20190909
